FAERS Safety Report 21847244 (Version 1)
Quarter: 2023Q1

REPORT INFORMATION
  Report Type: Spontaneous
  Country: CN (occurrence: None)
  Receive Date: 20230111
  Receipt Date: 20230111
  Transmission Date: 20230418
  Serious: Yes (Other)
  Sender: FDA-Public Use
  Company Number: CN-ROCHE-3257940

PATIENT
  Age: 78 Year
  Sex: Male

DRUGS (10)
  1. XELODA [Suspect]
     Active Substance: CAPECITABINE
     Indication: Rectal cancer metastatic
     Dosage: FOR 2 CYCLES
     Route: 048
     Dates: start: 20200122
  2. XELODA [Suspect]
     Active Substance: CAPECITABINE
     Dosage: FOR 6 CYCLES
     Route: 048
     Dates: start: 20200311
  3. XELODA [Suspect]
     Active Substance: CAPECITABINE
     Route: 048
     Dates: start: 20200814, end: 202104
  4. XELODA [Suspect]
     Active Substance: CAPECITABINE
     Route: 048
     Dates: start: 202104, end: 202201
  5. XELODA [Suspect]
     Active Substance: CAPECITABINE
     Route: 048
     Dates: start: 202202
  6. AVASTIN [Suspect]
     Active Substance: BEVACIZUMAB
     Indication: Rectal cancer metastatic
     Dosage: FOR 6 CYCLES
     Route: 065
     Dates: start: 20200311
  7. AVASTIN [Suspect]
     Active Substance: BEVACIZUMAB
     Route: 065
     Dates: start: 20200814, end: 202104
  8. AVASTIN [Suspect]
     Active Substance: BEVACIZUMAB
     Route: 065
     Dates: start: 202104
  9. OXALIPLATIN [Concomitant]
     Active Substance: OXALIPLATIN
     Indication: Rectal cancer metastatic
     Dosage: FOR 2 CYCLES
     Dates: start: 20200122
  10. OXALIPLATIN [Concomitant]
     Active Substance: OXALIPLATIN
     Dosage: FOR 6 CYCLES
     Dates: start: 20200311

REACTIONS (6)
  - Neurotoxicity [Unknown]
  - Nausea [Unknown]
  - Pigmentation disorder [Unknown]
  - Cerebral infarction [Unknown]
  - Proteinuria [Unknown]
  - COVID-19 [Unknown]

NARRATIVE: CASE EVENT DATE: 20220101
